FAERS Safety Report 18870772 (Version 1)
Quarter: 2021Q1

REPORT INFORMATION
  Report Type: Spontaneous
  Country: US (occurrence: US)
  Receive Date: 20210210
  Receipt Date: 20210210
  Transmission Date: 20210420
  Serious: Yes (Hospitalization, Other)
  Sender: FDA-Public Use
  Company Number: US-HISUN PHARMACEUTICALS-2106566

PATIENT
  Age: 55 Year
  Sex: Male

DRUGS (4)
  1. MYLOTARG [Suspect]
     Active Substance: GEMTUZUMAB OZOGAMICIN
  2. DAUNORUBICIN HYDROCHLORIDE. [Suspect]
     Active Substance: DAUNORUBICIN HYDROCHLORIDE
     Indication: ACUTE MYELOID LEUKAEMIA
  3. DASATINIB. [Suspect]
     Active Substance: DASATINIB
  4. CYTARABINE. [Suspect]
     Active Substance: CYTARABINE

REACTIONS (5)
  - Leukopenia [Unknown]
  - Sinusitis [Unknown]
  - Fusarium infection [Unknown]
  - Pneumonia [Unknown]
  - Pancytopenia [Unknown]
